FAERS Safety Report 7223571-9 (Version None)
Quarter: 2011Q1

REPORT INFORMATION
  Report Type: 
  Country: None (occurrence: None)
  Receive Date: 20110112
  Receipt Date: 20100823
  Transmission Date: 20110831
  Serious: No
  Sender: FDA-Public Use
  Company Number: US-ALLERGAN-1010900US

PATIENT
  Age: 72 Year
  Sex: Female

DRUGS (2)
  1. LOTEMAX [Concomitant]
     Indication: INFLAMMATION
     Dosage: 1 GTT, QID
     Route: 047
     Dates: end: 20100701
  2. RESTASIS [Suspect]
     Indication: DRY EYE
     Dosage: 1 GTT, BID
     Route: 047
     Dates: start: 20100701, end: 20100816

REACTIONS (3)
  - MIGRAINE [None]
  - NAUSEA [None]
  - EYE IRRITATION [None]
